FAERS Safety Report 4513221-4 (Version None)
Quarter: 2004Q4

REPORT INFORMATION
  Report Type: 
  Country: None (occurrence: None)
  Receive Date: 20041124
  Receipt Date: 20041109
  Transmission Date: 20050328
  Serious: Yes (Hospitalization)
  Sender: FDA-Public Use
  Company Number: 105393ISR

PATIENT
  Age: 60 Year
  Sex: Female

DRUGS (19)
  1. METHOTREXATE [Suspect]
     Dosage: 2.5 MILLIGRAM QW, ORAL
     Route: 048
  2. ARAVA [Suspect]
     Dosage: 10 MILLIGRAM, ORAL
     Route: 048
     Dates: end: 20040129
  3. PREDNISONUM [Suspect]
     Dosage: 5 MILLIGRAM, ORAL
     Route: 048
  4. ACTONEL [Concomitant]
  5. AMITRIPTYLINE HCL [Concomitant]
  6. IPATROPIUM BROMIDE [Concomitant]
  7. CALCITONIN-SALMON [Concomitant]
  8. DOXAZOSIN MESYLATE [Concomitant]
  9. DICLOFENAC SODIM [Concomitant]
  10. PANTOPRAZOLE SODIUM [Concomitant]
  11. LEVOTHYROXINE SODIUM [Concomitant]
  12. FENTANYL [Concomitant]
  13. FERROSI FUMARAS [Concomitant]
  14. FLUTICASONE PROPIONATE [Concomitant]
  15. FUROSEMIDE [Concomitant]
  16. HYDROCHLOROTHIAZID [Concomitant]
  17. GABAPENTIN [Concomitant]
  18. PARACETAMOL [Concomitant]
  19. METOPROLOL SUCCINATE [Concomitant]

REACTIONS (2)
  - LUNG INFECTION PSEUDOMONAL [None]
  - PNEUMONIA STAPHYLOCOCCAL [None]
